FAERS Safety Report 4538356-1 (Version None)
Quarter: 2004Q4

REPORT INFORMATION
  Report Type: 
  Country: None (occurrence: None)
  Receive Date: 20041221
  Receipt Date: 20041213
  Transmission Date: 20050328
  Serious: No
  Sender: FDA-Public Use
  Company Number: 2004AC01026

PATIENT
  Weight: 3.2 kg

DRUGS (5)
  1. LIDOCAINE [Suspect]
     Indication: CONVULSION
     Dosage: 2 MG/KG ONCE IV
     Route: 042
  2. LIDOCAINE [Suspect]
     Indication: CONVULSION
     Dosage: LIDOCAINE WAS STOPPED, RESTARTED AFTER 13 HRS. DOSAGE NOT SPECIFIED
  3. PHENOBARBITAL TAB [Concomitant]
  4. CLONAZEPAM [Concomitant]
  5. MIDAZOLAM HCL [Concomitant]

REACTIONS (3)
  - CONVULSION NEONATAL [None]
  - DRUG INEFFECTIVE [None]
  - NEONATAL TACHYCARDIA [None]
